FAERS Safety Report 8221460-4 (Version None)
Quarter: 2012Q1

REPORT INFORMATION
  Report Type: 
  Country: None (occurrence: None)
  Receive Date: 20120320
  Receipt Date: 20120313
  Transmission Date: 20120608
  Serious: Yes (Hospitalization, Other)
  Sender: FDA-Public Use
  Company Number: FR-PFIZER INC-2012065479

PATIENT
  Age: 62 Year
  Sex: Male

DRUGS (6)
  1. EFFEXOR XR [Suspect]
     Dosage: 75 MG, 3X/DAY
     Route: 048
     Dates: end: 20111224
  2. FELODIPINE [Suspect]
     Dosage: 1 DOSAGE FORM, 1X/DAY
     Route: 048
     Dates: end: 20111224
  3. MIRTAZAPINE [Suspect]
     Dosage: 15 MG, 2X/DAY
     Route: 048
     Dates: end: 20111224
  4. IRBESARTAN + HYDROCHLOROTHIAZIDE [Suspect]
     Dosage: 1 DOSAGE  FORM, 1X/DAY
     Route: 048
     Dates: end: 20111224
  5. ALPRAZOLAM [Suspect]
     Dosage: 0.125 MG IN THE MORNING AND 0.25 MG IN THE EVENING
     Route: 048
     Dates: end: 20111224
  6. IMOVANE [Concomitant]
     Dosage: 7.5 MG DAILY
     Route: 048

REACTIONS (5)
  - DIARRHOEA [None]
  - URINARY INCONTINENCE [None]
  - HYPOKALAEMIA [None]
  - HYPONATRAEMIA [None]
  - RENAL FAILURE [None]
